FAERS Safety Report 8130467-7 (Version None)
Quarter: 2012Q1

REPORT INFORMATION
  Report Type: 
  Country: None (occurrence: None)
  Receive Date: 20120210
  Receipt Date: 20120208
  Transmission Date: 20120608
  Serious: Yes (Hospitalization)
  Sender: FDA-Public Use
  Company Number: US-MERCK-1201USA00956

PATIENT
  Age: 65 Year
  Sex: Male

DRUGS (4)
  1. GLIMEPIRIDE [Concomitant]
     Route: 065
  2. DEPAKOTE [Concomitant]
     Route: 065
  3. JANUVIA [Suspect]
     Route: 048
     Dates: start: 20100101
  4. LISINOPRIL [Concomitant]
     Route: 065

REACTIONS (6)
  - FEELING ABNORMAL [None]
  - DEHYDRATION [None]
  - BLOOD GLUCOSE ABNORMAL [None]
  - NAUSEA [None]
  - APHAGIA [None]
  - ASTHENIA [None]
